FAERS Safety Report 16356875 (Version 1)
Quarter: 2019Q2

REPORT INFORMATION
  Report Type: Spontaneous
  Country: US (occurrence: US)
  Receive Date: 20190527
  Receipt Date: 20190527
  Transmission Date: 20190711
  Serious: No
  Sender: FDA-Public Use
  Company Number: US-LUPIN PHARMACEUTICALS INC.-2019-02811

PATIENT
  Age: 43 Year
  Sex: Female
  Weight: 66.67 kg

DRUGS (1)
  1. SOLOSEC [Suspect]
     Active Substance: SECNIDAZOLE
     Indication: BACTERIAL VAGINOSIS
     Dosage: UNK UNK, QD
     Route: 048
     Dates: start: 20190430, end: 20190430

REACTIONS (2)
  - Vomiting [Recovered/Resolved]
  - Wrong technique in product usage process [Unknown]

NARRATIVE: CASE EVENT DATE: 20190501
